FAERS Safety Report 5206161-9 (Version None)
Quarter: 2006Q4

REPORT INFORMATION
  Report Type: 
  Country: None (occurrence: None)
  Receive Date: 20061026
  Receipt Date: 20060919
  Transmission Date: 20070319
  Serious: No
  Sender: FDA-Public Use
  Company Number: 2006114665

PATIENT
  Age: 52 Year
  Sex: Female

DRUGS (4)
  1. LYRICA [Suspect]
     Indication: CONVULSION
     Dosage: 300 MG (150 MG, 2 N 1 D)
     Dates: start: 20060714
  2. KEPPRA [Suspect]
  3. ALLEGRA [Concomitant]
  4. TEGRETOL [Concomitant]

REACTIONS (2)
  - DYSGEUSIA [None]
  - SKIN ODOUR ABNORMAL [None]
